FAERS Safety Report 4482811-X (Version None)
Quarter: 2004Q3

REPORT INFORMATION
  Report Type: 
  Country: None (occurrence: None)
  Receive Date: 20040921
  Receipt Date: 20040522
  Transmission Date: 20050211
  Serious: Yes (Hospitalization)
  Sender: FDA-Public Use
  Company Number: 163-20785-04050555(0)

PATIENT
  Age: 67 Year
  Sex: Female
  Weight: 57.1 kg

DRUGS (3)
  1. THALOMID [Suspect]
     Indication: MULTIPLE MYELOMA
     Dosage: 200-400 MG, DAILY, ORAL
     Route: 048
     Dates: start: 20040430, end: 20040510
  2. GENASENSE [Suspect]
     Indication: MULTIPLE MYELOMA
     Dosage: 5 MG/KG, Q.D. D1-7, 22-28, 43-49, INTRAVENOUS
     Route: 042
     Dates: start: 20040426, end: 20040503
  3. DEXAMETHASONE [Suspect]
     Indication: MULTIPLE MYELOMA
     Dosage: 40 MG, Q.D. D4-7, 25-28, 46-49, ORAL
     Route: 048
     Dates: start: 20040430, end: 20040502

REACTIONS (7)
  - COUGH [None]
  - DIARRHOEA [None]
  - FATIGUE [None]
  - HAEMOGLOBIN DECREASED [None]
  - HYPOTENSION [None]
  - PYREXIA [None]
  - VOMITING [None]
